FAERS Safety Report 20481686 (Version 3)
Quarter: 2022Q1

REPORT INFORMATION
  Report Type: Spontaneous
  Country: US (occurrence: US)
  Receive Date: 20220216
  Receipt Date: 20220321
  Transmission Date: 20220423
  Serious: No
  Sender: FDA-Public Use
  Company Number: US-BAYER-2022A021014

PATIENT
  Age: 18 Year
  Sex: Male

DRUGS (3)
  1. KOGENATE FS [Suspect]
     Active Substance: ANTIHEMOPHILIC FACTOR, HUMAN RECOMBINANT
     Dosage: 1615 IU
  2. KOGENATE FS [Suspect]
     Active Substance: ANTIHEMOPHILIC FACTOR, HUMAN RECOMBINANT
     Dosage: 1 DF,  FOR THE FINGER INJURY
     Dates: start: 20220202
  3. KOGENATE FS [Suspect]
     Active Substance: ANTIHEMOPHILIC FACTOR, HUMAN RECOMBINANT
     Dosage: 2 DF, FOR WISDOM TEETH EXTRACTED TREATMENT
     Dates: start: 20220213, end: 20220213

REACTIONS (2)
  - Limb injury [Recovered/Resolved]
  - Wisdom teeth removal [None]

NARRATIVE: CASE EVENT DATE: 20220202
